FAERS Safety Report 6960540-8 (Version None)
Quarter: 2010Q3

REPORT INFORMATION
  Report Type: 
  Country: None (occurrence: None)
  Receive Date: 20100901
  Receipt Date: 20100820
  Transmission Date: 20110219
  Serious: Yes (Other)
  Sender: FDA-Public Use
  Company Number: RU-JNJFOC-20100807626

PATIENT
  Age: 32 Year
  Sex: Male

DRUGS (3)
  1. LEVOFLOXACIN [Suspect]
     Indication: PNEUMONIA
     Route: 042
  2. METRONIDAZOLE [Concomitant]
     Route: 065
  3. CEFTRIAXONE [Concomitant]
     Route: 065

REACTIONS (2)
  - FACE OEDEMA [None]
  - LACRIMATION INCREASED [None]
